FAERS Safety Report 20471181 (Version 1)
Quarter: 2022Q1

REPORT INFORMATION
  Report Type: Other
  Country: CA (occurrence: CA)
  Receive Date: 20220214
  Receipt Date: 20220214
  Transmission Date: 20220423
  Serious: Yes (Hospitalization)
  Sender: FDA-Public Use
  Company Number: CA-HLS-202200255

PATIENT
  Age: 20 Year
  Sex: Male

DRUGS (5)
  1. CLOZAPINE [Suspect]
     Active Substance: CLOZAPINE
     Indication: Schizophrenia
     Dosage: 175 MG , THEN INCREASED FROM 175 TO 200 MG
     Route: 065
  2. CLOZAPINE [Suspect]
     Active Substance: CLOZAPINE
     Indication: Schizophrenia
     Dosage: 6.25 MG AND SLOWLY TITRATED UP, INITIALLY WITH?12.5 MG WEEKLY INCREASE AND THEN 25 MG WEEKLY UP TO A
     Route: 065
  3. SERTRALINE [Concomitant]
     Active Substance: SERTRALINE HYDROCHLORIDE
     Indication: Anxiety disorder
     Route: 065
  4. LORAZEPAM [Concomitant]
     Active Substance: LORAZEPAM
     Indication: Product used for unknown indication
     Route: 065
  5. ARIPIPRAZOLE [Concomitant]
     Active Substance: ARIPIPRAZOLE
     Indication: Product used for unknown indication
     Route: 065

REACTIONS (9)
  - Anxiety disorder [Recovering/Resolving]
  - Substance use disorder [Recovering/Resolving]
  - Blood creatine phosphokinase increased [Recovered/Resolved]
  - Mental impairment [Recovering/Resolving]
  - Myalgia [Recovering/Resolving]
  - Psychotic symptom [Recovering/Resolving]
  - Rhabdomyolysis [Recovering/Resolving]
  - Hallucinations, mixed [Recovering/Resolving]
  - Weight increased [Recovering/Resolving]
